FAERS Safety Report 6882588-4 (Version None)
Quarter: 2010Q3

REPORT INFORMATION
  Report Type: 
  Country: None (occurrence: None)
  Receive Date: 20100729
  Receipt Date: 20100721
  Transmission Date: 20110219
  Serious: Yes (Other)
  Sender: FDA-Public Use
  Company Number: US-BRISTOL-MYERS SQUIBB COMPANY-15207384

PATIENT
  Age: 57 Year
  Sex: Female

DRUGS (2)
  1. IXABEPILONE [Suspect]
     Indication: BREAST CANCER
     Dosage: LAST DOSE ON:4JUN2010; CYCLE 7 DAY28:17JUN2010 ON DAY 1,8 +15
     Route: 042
     Dates: start: 20091204
  2. BEVACIZUMAB [Suspect]
     Indication: BREAST CANCER
     Dosage: LAST DOSE ON:4JUN2010; CYCLE 7 DAY28:17JUN2010 ON DAY 1 +15
     Route: 042
     Dates: start: 20091204

REACTIONS (1)
  - CHOLECYSTITIS [None]
